FAERS Safety Report 18861462 (Version 2)
Quarter: 2021Q2

REPORT INFORMATION
  Report Type: Report from Study
  Country: BR (occurrence: BR)
  Receive Date: 20210208
  Receipt Date: 20210515
  Transmission Date: 20210717
  Serious: Yes (Life-Threatening, Hospitalization, Other)
  Sender: FDA-Public Use
  Company Number: NVSC2020BR100944

PATIENT
  Age: 49 Year
  Sex: Female

DRUGS (4)
  1. COSENTYX [Suspect]
     Active Substance: SECUKINUMAB
     Dosage: UNK, QMO
     Route: 065
     Dates: start: 202003
  2. METHOTREXATE. [Concomitant]
     Active Substance: METHOTREXATE
     Indication: PRODUCT USED FOR UNKNOWN INDICATION
     Dosage: UNK
     Route: 065
  3. COSENTYX [Suspect]
     Active Substance: SECUKINUMAB
     Indication: ANKYLOSING SPONDYLITIS
     Dosage: 150 MG, UNKNOWN
     Route: 065
     Dates: start: 20200306
  4. COSENTYX [Suspect]
     Active Substance: SECUKINUMAB
     Dosage: UNK
     Route: 065
     Dates: start: 20201213

REACTIONS (58)
  - Urinary tract infection [Recovered/Resolved]
  - Arthralgia [Recovering/Resolving]
  - Eye disorder [Unknown]
  - Urinary tract infection [Recovered/Resolved]
  - Diarrhoea [Recovered/Resolved]
  - Ileus paralytic [Recovered/Resolved]
  - Pharyngeal swelling [Recovered/Resolved]
  - Malaise [Unknown]
  - Asthenia [Not Recovered/Not Resolved]
  - Reading disorder [Unknown]
  - Dyspnoea [Recovered/Resolved]
  - Renal disorder [Not Recovered/Not Resolved]
  - Sepsis [Unknown]
  - Loss of consciousness [Recovered/Resolved]
  - Pain [Recovered/Resolved]
  - Decreased interest [Unknown]
  - Eye pain [Unknown]
  - Pyrexia [Recovered/Resolved]
  - Supraventricular tachycardia [Recovered/Resolved]
  - Ocular icterus [Recovered/Resolved]
  - Confusional state [Recovered/Resolved]
  - Limb discomfort [Not Recovered/Not Resolved]
  - Fall [Recovering/Resolving]
  - Discomfort [Recovering/Resolving]
  - Electrolyte imbalance [Recovered/Resolved]
  - Heart rate increased [Recovered/Resolved]
  - Abdominal wall oedema [Recovered/Resolved]
  - Nasopharyngitis [Recovered/Resolved]
  - Loss of consciousness [Recovered/Resolved]
  - Peripheral swelling [Recovering/Resolving]
  - Pain in extremity [Recovering/Resolving]
  - Nausea [Unknown]
  - Fear [Unknown]
  - Urinary tract infection [Recovered/Resolved]
  - Back pain [Not Recovered/Not Resolved]
  - Spinal pain [Recovering/Resolving]
  - Fatigue [Recovered/Resolved]
  - Inflammation [Unknown]
  - Dyspnoea [Not Recovered/Not Resolved]
  - Hydronephrosis [Recovering/Resolving]
  - Eye irritation [Unknown]
  - Dysgeusia [Unknown]
  - Memory impairment [Not Recovered/Not Resolved]
  - Vomiting [Recovered/Resolved]
  - Product dose omission issue [Unknown]
  - Cerebrovascular accident [Recovered/Resolved]
  - Appetite disorder [Unknown]
  - Dizziness [Not Recovered/Not Resolved]
  - Gait disturbance [Recovered/Resolved]
  - Bruxism [Not Recovered/Not Resolved]
  - Movement disorder [Unknown]
  - Hypotension [Recovered/Resolved]
  - Coma [Recovered/Resolved]
  - Infection [Recovered/Resolved]
  - Dysphonia [Recovered/Resolved]
  - Anger [Unknown]
  - Urinary tract infection [Recovered/Resolved]
  - Irritability [Unknown]

NARRATIVE: CASE EVENT DATE: 20200405
